FAERS Safety Report 23600862 (Version 4)
Quarter: 2024Q2

REPORT INFORMATION
  Report Type: Spontaneous
  Country: US (occurrence: US)
  Receive Date: 20240306
  Receipt Date: 20240527
  Transmission Date: 20240716
  Serious: No
  Sender: FDA-Public Use
  Company Number: US-Calliditas-2024CAL00191

PATIENT
  Age: 59 Year
  Sex: Female

DRUGS (6)
  1. TARPEYO [Suspect]
     Active Substance: BUDESONIDE
     Indication: Proteinuria
     Dosage: 16 MG (4 MG CAPSULES) ONCE DAILY
     Route: 048
     Dates: start: 20240104
  2. ALLOPURINOL [Concomitant]
     Active Substance: ALLOPURINOL
     Indication: Hyperuricaemia
  3. ATORVASTATIN [Concomitant]
     Active Substance: ATORVASTATIN
     Indication: Hyperlipidaemia
  4. LOSARTAN [Concomitant]
     Active Substance: LOSARTAN
  5. FISH OIL [Concomitant]
     Active Substance: FISH OIL
  6. PRENATAL VITAMINS [ASCORBIC ACID;BETACAROTENE;CALCIUM SULFATE;COLEC... [Concomitant]

REACTIONS (4)
  - Back pain [Unknown]
  - Peripheral swelling [Recovering/Resolving]
  - Pain [Unknown]
  - Swelling face [Recovering/Resolving]
